FAERS Safety Report 16909384 (Version 1)
Quarter: 2019Q4

REPORT INFORMATION
  Report Type: Spontaneous
  Country: US (occurrence: US)
  Receive Date: 20190820
  Receipt Date: 20190820
  Transmission Date: 20200122
  Serious: No
  Sender: FDA-Public Use
  Company Number: None

PATIENT
  Age: 55 Year
  Sex: Male

DRUGS (9)
  1. BUPROPION. [Concomitant]
     Active Substance: BUPROPION
  2. HCTZ [Concomitant]
     Active Substance: HYDROCHLOROTHIAZIDE
  3. DULOXETINE. [Concomitant]
     Active Substance: DULOXETINE
  4. MAVYRET [Suspect]
     Active Substance: GLECAPREVIR\PIBRENTASVIR
     Route: 048
     Dates: start: 20190727
  5. SIMVASTATIN. [Concomitant]
     Active Substance: SIMVASTATIN
  6. ALEVE [Concomitant]
     Active Substance: NAPROXEN SODIUM
  7. LOSARTAN. [Concomitant]
     Active Substance: LOSARTAN
  8. QUETIAPINE. [Concomitant]
     Active Substance: QUETIAPINE
  9. IRON [Concomitant]
     Active Substance: IRON

REACTIONS (1)
  - Headache [None]

NARRATIVE: CASE EVENT DATE: 20190728
